FAERS Safety Report 10523882 (Version 1)
Quarter: 2014Q4

REPORT INFORMATION
  Report Type: Spontaneous
  Country: US (occurrence: None)
  Receive Date: 20141015
  Receipt Date: 20141015
  Transmission Date: 20150528
  Serious: No
  Sender: FDA-Public Use
  Company Number: None

PATIENT
  Age: 33 Year
  Sex: Female

DRUGS (1)
  1. MAKENA [Suspect]
     Active Substance: HYDROXYPROGESTERONE CAPROATE
     Indication: PREGNANCY
     Dosage: 1 DOSE
     Route: 030

REACTIONS (5)
  - Dizziness [None]
  - Pulmonary embolism [None]
  - Chest discomfort [None]
  - Dyspnoea exertional [None]
  - Palpitations [None]

NARRATIVE: CASE EVENT DATE: 20141011
